FAERS Safety Report 8255554-4 (Version None)
Quarter: 2012Q1

REPORT INFORMATION
  Report Type: 
  Country: None (occurrence: None)
  Receive Date: 20120329
  Receipt Date: 20120314
  Transmission Date: 20120608
  Serious: Yes (Hospitalization)
  Sender: FDA-Public Use
  Company Number: 2012-00509

PATIENT
  Age: 16 Year
  Sex: Male

DRUGS (1)
  1. SERTRALINE HYDROCHLORIDE [Suspect]
     Indication: DEPRESSION

REACTIONS (14)
  - NEGATIVE THOUGHTS [None]
  - INTENTIONAL SELF-INJURY [None]
  - AGGRESSION [None]
  - PYREXIA [None]
  - RESTLESSNESS [None]
  - DISORIENTATION [None]
  - ANGER [None]
  - OBSESSIVE THOUGHTS [None]
  - IMPULSIVE BEHAVIOUR [None]
  - SUICIDE ATTEMPT [None]
  - AGITATION [None]
  - ANXIETY [None]
  - THINKING ABNORMAL [None]
  - AKATHISIA [None]
